FAERS Safety Report 10637500 (Version 1)
Quarter: 2014Q4

REPORT INFORMATION
  Report Type: Spontaneous
  Country: US (occurrence: None)
  Receive Date: 20141205
  Receipt Date: 20141205
  Transmission Date: 20150529
  Serious: Yes (Other)
  Sender: FDA-Public Use
  Company Number: None

PATIENT
  Age: 71 Year
  Sex: Male
  Weight: 101.61 kg

DRUGS (1)
  1. AMPYRA [Suspect]
     Active Substance: DALFAMPRIDINE
     Indication: MULTIPLE SCLEROSIS
     Dosage: 1 PILL TWICE DAILY TAKEN BY MOUTH
     Route: 048

REACTIONS (7)
  - Pain [None]
  - Sleep disorder [None]
  - Balance disorder [None]
  - Condition aggravated [None]
  - Gait disturbance [None]
  - Burning sensation [None]
  - Crying [None]

NARRATIVE: CASE EVENT DATE: 20141204
